FAERS Safety Report 21158048 (Version 2)
Quarter: 2022Q3

REPORT INFORMATION
  Report Type: Report from Study
  Country: CA (occurrence: CA)
  Receive Date: 20220801
  Receipt Date: 20220810
  Transmission Date: 20221027
  Serious: Yes (Other)
  Sender: FDA-Public Use
  Company Number: CA-PFIZER INC-202201013793

PATIENT
  Age: 71 Year
  Sex: Male

DRUGS (12)
  1. LEUCOVORIN [Suspect]
     Active Substance: LEUCOVORIN
     Route: 065
  2. OXALIPLATIN [Suspect]
     Active Substance: OXALIPLATIN
     Route: 065
  3. FLUOROURACIL [Suspect]
     Active Substance: FLUOROURACIL
     Indication: Oesophageal carcinoma
     Route: 065
  4. PEMBROLIZUMAB [Suspect]
     Active Substance: PEMBROLIZUMAB
     Indication: Oesophageal carcinoma
     Dosage: 400 MG 1 EVERY 6 WEEKS
     Route: 042
  5. PEMBROLIZUMAB [Suspect]
     Active Substance: PEMBROLIZUMAB
     Dosage: 200 MG 1 EVERY 6 WEEKS
     Route: 065
  6. PEMBROLIZUMAB [Suspect]
     Active Substance: PEMBROLIZUMAB
     Dosage: 200 MG,1 EVERY 6 WEEKS
     Route: 042
  7. PEMBROLIZUMAB [Suspect]
     Active Substance: PEMBROLIZUMAB
     Dosage: 200 MG, EVERY 3 WEEKS
     Route: 065
  8. PEMBROLIZUMAB [Suspect]
     Active Substance: PEMBROLIZUMAB
     Dosage: 400 MG 1 EVERY 6 WEEKS
     Route: 042
  9. PEMBROLIZUMAB [Suspect]
     Active Substance: PEMBROLIZUMAB
     Dosage: UNK
     Route: 065
  10. PEMBROLIZUMAB [Suspect]
     Active Substance: PEMBROLIZUMAB
     Dosage: 400 MG 1 EVERY 6 WEEKS
     Route: 042
  11. PEMBROLIZUMAB [Suspect]
     Active Substance: PEMBROLIZUMAB
     Indication: Oesophageal carcinoma
     Dosage: 200 MG, EVERY 3 WEEKS
     Route: 065
  12. FLUOROURACIL [Concomitant]
     Active Substance: FLUOROURACIL

REACTIONS (32)
  - Anxiety [Recovered/Resolved]
  - Appetite disorder [Not Recovered/Not Resolved]
  - Decreased appetite [Recovered/Resolved]
  - Depression [Not Recovered/Not Resolved]
  - Dry mouth [Recovered/Resolved]
  - Dyspepsia [Recovered/Resolved]
  - Dysphagia [Recovered/Resolved]
  - Dyspnoea [Recovered/Resolved]
  - Fatigue [Recovered/Resolved]
  - Fear [Recovered/Resolved]
  - Haemoglobin abnormal [Recovered/Resolved]
  - Inappropriate schedule of product administration [Recovered/Resolved]
  - Incorrect dose administered [Not Recovered/Not Resolved]
  - Malaise [Recovered/Resolved]
  - Mucosal inflammation [Recovered/Resolved]
  - Nausea [Recovered/Resolved]
  - Neuropathy peripheral [Recovered/Resolved]
  - Neutrophil count abnormal [Recovered/Resolved]
  - Oropharyngeal pain [Recovered/Resolved]
  - Platelet count abnormal [Recovered/Resolved]
  - Poor venous access [Not Recovered/Not Resolved]
  - Product preparation issue [Recovered/Resolved]
  - Product use issue [Recovered/Resolved]
  - Rash [Recovered/Resolved]
  - Somnolence [Recovered/Resolved]
  - Stomatitis [Recovered/Resolved]
  - Weight abnormal [Recovered/Resolved]
  - White blood cell count abnormal [Recovered/Resolved]
  - Catheter site rash [Recovered/Resolved]
  - Depressed mood [Recovered/Resolved]
  - Vascular access complication [Recovered/Resolved]
  - Neoplasm recurrence [Not Recovered/Not Resolved]
